FAERS Safety Report 17901483 (Version 3)
Quarter: 2020Q3

REPORT INFORMATION
  Report Type: Report from Study
  Country: IE (occurrence: IE)
  Receive Date: 20200616
  Receipt Date: 20200915
  Transmission Date: 20201103
  Serious: Yes (Other)
  Sender: FDA-Public Use
  Company Number: IE-JNJFOC-20200614154

PATIENT
  Age: 74 Year
  Sex: Male
  Weight: 130.4 kg

DRUGS (17)
  1. DECAPEPTYL                         /00486501/ [Concomitant]
     Active Substance: GONADORELIN
     Route: 050
  2. LOSARTAN. [Concomitant]
     Active Substance: LOSARTAN
     Route: 050
  3. METFORMIN HYDROCHLORIDE. [Concomitant]
     Active Substance: METFORMIN HYDROCHLORIDE
     Route: 050
  4. BICALUTAMIDE. [Concomitant]
     Active Substance: BICALUTAMIDE
     Route: 050
  5. ESOMEPRAZOLE. [Concomitant]
     Active Substance: ESOMEPRAZOLE MAGNESIUM
     Route: 050
  6. PREDNISONE. [Concomitant]
     Active Substance: PREDNISONE
     Route: 050
  7. ABIRATERONE ACETATE. [Suspect]
     Active Substance: ABIRATERONE ACETATE
     Indication: PROSTATE CANCER METASTATIC
     Route: 048
     Dates: start: 20200224
  8. BETMIGA [Concomitant]
     Active Substance: MIRABEGRON
     Route: 050
  9. SEMAGLUTIDE [Concomitant]
     Active Substance: SEMAGLUTIDE
     Route: 050
  10. AMOXICILLIN. [Concomitant]
     Active Substance: AMOXICILLIN
     Route: 050
  11. DEXAMETHASONE. [Concomitant]
     Active Substance: DEXAMETHASONE
     Route: 050
  12. COMBODART [Concomitant]
     Active Substance: DUTASTERIDE\TAMSULOSIN
     Route: 050
  13. ELIQUIS [Concomitant]
     Active Substance: APIXABAN
     Route: 050
  14. LYRINEL XL [Concomitant]
     Active Substance: OXYBUTYNIN
     Route: 050
  15. FRUSEMIDE                          /00032601/ [Concomitant]
     Active Substance: FUROSEMIDE
     Route: 050
  16. BISOPROLOL [Concomitant]
     Active Substance: BISOPROLOL
     Route: 050
  17. ATORVASTATIN [Concomitant]
     Active Substance: ATORVASTATIN
     Route: 050

REACTIONS (1)
  - Sciatica [Not Recovered/Not Resolved]

NARRATIVE: CASE EVENT DATE: 20200501
